FAERS Safety Report 9084883 (Version 2)
Quarter: 2013Q1

REPORT INFORMATION
  Report Type: Spontaneous
  Country: US (occurrence: US)
  Receive Date: 20130130
  Receipt Date: 20130311
  Transmission Date: 20140127
  Serious: No
  Sender: FDA-Public Use
  Company Number: US-009507513-1301USA011082

PATIENT
  Age: 30 Year
  Sex: Female

DRUGS (1)
  1. IMPLANON [Suspect]
     Indication: ENDOMETRIOSIS
     Dosage: UNK
     Route: 059
     Dates: start: 20121025

REACTIONS (4)
  - Spinal pain [Not Recovered/Not Resolved]
  - Hypersensitivity [Not Recovered/Not Resolved]
  - Off label use [Unknown]
  - Medical device complication [Unknown]
